FAERS Safety Report 5807775-5 (Version None)
Quarter: 2008Q3

REPORT INFORMATION
  Report Type: 
  Country: None (occurrence: None)
  Receive Date: 20080711
  Receipt Date: 20080701
  Transmission Date: 20090109
  Serious: Yes (Disabling, Other)
  Sender: FDA-Public Use
  Company Number: JP-PFIZER INC-2008044458

PATIENT
  Sex: Female

DRUGS (7)
  1. CELECOX [Suspect]
     Indication: RHEUMATOID ARTHRITIS
     Route: 048
     Dates: start: 20080201, end: 20080324
  2. PREDNISOLONE [Suspect]
     Indication: RHEUMATOID ARTHRITIS
     Route: 048
     Dates: start: 20080202, end: 20080208
  3. NEUROTROPIN [Concomitant]
     Dosage: TEXT:4 TABLETS/DAY
     Route: 048
     Dates: start: 20080209, end: 20080523
  4. MECOBALAMIN [Concomitant]
     Dosage: TEXT:1.0 MG/DAY
     Route: 048
     Dates: start: 20080209, end: 20080523
  5. PARIET [Concomitant]
     Route: 048
  6. MAGNESIUM OXIDE [Concomitant]
     Route: 048
  7. BIO THREE [Concomitant]
     Route: 048

REACTIONS (2)
  - BLISTER [None]
  - SKIN NECROSIS [None]
